FAERS Safety Report 15017585 (Version 6)
Quarter: 2019Q4

REPORT INFORMATION
  Report Type: Spontaneous
  Country: US (occurrence: US)
  Receive Date: 20180615
  Receipt Date: 20191021
  Transmission Date: 20200122
  Serious: Yes (Other)
  Sender: FDA-Public Use
  Company Number: US-PFIZER INC-2018244037

PATIENT
  Age: 60 Year
  Sex: Female

DRUGS (2)
  1. XELJANZ [Suspect]
     Active Substance: TOFACITINIB CITRATE
     Dosage: 5 MG, 1X/DAY
  2. XELJANZ [Suspect]
     Active Substance: TOFACITINIB CITRATE
     Dosage: 5 MG, 2X/DAY

REACTIONS (8)
  - Intracranial aneurysm [Unknown]
  - Cerebrovascular accident [Unknown]
  - Gingival disorder [Unknown]
  - Pain [Unknown]
  - Stomatitis [Unknown]
  - Intentional product misuse [Unknown]
  - Gingival pain [Unknown]
  - Arthralgia [Unknown]
